FAERS Safety Report 4281328-5 (Version None)
Quarter: 2004Q1

REPORT INFORMATION
  Report Type: 
  Country: None (occurrence: None)
  Receive Date: 20040129
  Receipt Date: 20031211
  Transmission Date: 20041129
  Serious: Yes (Other)
  Sender: FDA-Public Use
  Company Number: US-ROCHE-353899

PATIENT
  Age: 13 Year
  Sex: Male
  Weight: 59 kg

DRUGS (1)
  1. ACCUTANE [Suspect]
     Indication: ACNE
     Route: 048
     Dates: start: 20031126, end: 20031209

REACTIONS (6)
  - AFFECT LABILITY [None]
  - ANGIONEUROTIC OEDEMA [None]
  - CHAPPED LIPS [None]
  - HEADACHE [None]
  - LIP DRY [None]
  - PAIN [None]
